FAERS Safety Report 13188790 (Version 1)
Quarter: 2017Q1

REPORT INFORMATION
  Report Type: Spontaneous
  Country: US (occurrence: US)
  Receive Date: 20170205
  Receipt Date: 20170205
  Transmission Date: 20170428
  Serious: Yes (Other)
  Sender: FDA-Public Use
  Company Number: None

PATIENT
  Age: 59 Year
  Sex: Female
  Weight: 54 kg

DRUGS (20)
  1. RESTASIS [Concomitant]
     Active Substance: CYCLOSPORINE
  2. NOVOTEARS [Concomitant]
  3. LEUTIN [Concomitant]
  4. MAGNESIUM [Concomitant]
     Active Substance: MAGNESIUM
  5. C [Concomitant]
  6. ESTRACE [Concomitant]
     Active Substance: ESTRADIOL
  7. MULTIVITAMIN [Concomitant]
     Active Substance: VITAMINS
  8. CALCIUM [Concomitant]
     Active Substance: CALCIUM
  9. FLAX OIL [Concomitant]
  10. XIIDRA [Suspect]
     Active Substance: LIFITEGRAST
     Indication: DRY EYE
     Dosage: ?          QUANTITY:1 DROP(S);?
     Route: 047
  11. WILD YAM ROOT [Concomitant]
  12. XIIDRA [Suspect]
     Active Substance: LIFITEGRAST
     Indication: SJOGREN^S SYNDROME
     Dosage: ?          QUANTITY:1 DROP(S);?
     Route: 047
  13. D-3 [Concomitant]
     Active Substance: CHOLECALCIFEROL
  14. HYDROXYCHLORQUININE [Concomitant]
  15. ZALEPLON. [Concomitant]
     Active Substance: ZALEPLON
  16. IRON [Concomitant]
     Active Substance: IRON
  17. POTASSIUMM [Concomitant]
  18. OTC EYE DROPS [Concomitant]
     Active Substance: UNSPECIFIED INGREDIENT
  19. OTC EYE OINTMENT [Concomitant]
  20. COQ10 [Concomitant]
     Active Substance: UBIDECARENONE

REACTIONS (3)
  - Drug ineffective [None]
  - Eye pain [None]
  - Photophobia [None]

NARRATIVE: CASE EVENT DATE: 20170202
